FAERS Safety Report 25627074 (Version 2)
Quarter: 2025Q3

REPORT INFORMATION
  Report Type: Report from Study
  Country: US (occurrence: US)
  Receive Date: 20250731
  Receipt Date: 20250812
  Transmission Date: 20251020
  Serious: Yes (Other)
  Sender: TAKEDA
  Company Number: US-TAKEDA-2025TUS063132

PATIENT
  Sex: Male
  Weight: 67 kg

DRUGS (27)
  1. HUMAN IMMUNOGLOBULIN G [Suspect]
     Active Substance: HUMAN IMMUNOGLOBULIN G
     Indication: Myasthenia gravis
  2. HUMAN IMMUNOGLOBULIN G [Suspect]
     Active Substance: HUMAN IMMUNOGLOBULIN G
     Dosage: 125 GRAM, Q4WEEKS
  3. ACETAMINOPHEN [Concomitant]
     Active Substance: ACETAMINOPHEN
  4. EPINEPHRINE [Concomitant]
     Active Substance: EPINEPHRINE
  5. ATORVASTATIN CALCIUM [Concomitant]
     Active Substance: ATORVASTATIN CALCIUM
  6. LIPITOR [Concomitant]
     Active Substance: ATORVASTATIN CALCIUM
  7. ESCITALOPRAM OXALATE [Concomitant]
     Active Substance: ESCITALOPRAM OXALATE
  8. ASPIRIN [Concomitant]
     Active Substance: ASPIRIN
  9. SODIUM CHLORIDE [Concomitant]
     Active Substance: SODIUM CHLORIDE
  10. PROTONIX [Concomitant]
     Active Substance: PANTOPRAZOLE SODIUM
  11. ZOLPIDEM TARTRATE [Concomitant]
     Active Substance: ZOLPIDEM TARTRATE
  12. VITAMIN D3 [Concomitant]
     Active Substance: CHOLECALCIFEROL
  13. ALLOPURINOL [Concomitant]
     Active Substance: ALLOPURINOL
  14. IRON [Concomitant]
     Active Substance: IRON
  15. GABAPENTIN [Concomitant]
     Active Substance: GABAPENTIN
  16. LIDOCAINE [Concomitant]
     Active Substance: LIDOCAINE
  17. HEPARIN [Concomitant]
     Active Substance: HEPARIN SODIUM
  18. MESTINON [Concomitant]
     Active Substance: PYRIDOSTIGMINE BROMIDE
  19. AZO Bladder Control With Go Less [Concomitant]
  20. SPIRONOLACTONE [Concomitant]
     Active Substance: SPIRONOLACTONE
  21. COLCHICINE [Concomitant]
     Active Substance: COLCHICINE
  22. DIPHENHYDRAMINE HYDROCHLORIDE [Concomitant]
     Active Substance: DIPHENHYDRAMINE HYDROCHLORIDE
  23. FARXIGA [Concomitant]
     Active Substance: DAPAGLIFLOZIN PROPANEDIOL
  24. CARVEDILOL [Concomitant]
     Active Substance: CARVEDILOL
  25. TORSEMIDE [Concomitant]
     Active Substance: TORSEMIDE
  26. DIGOXIN [Concomitant]
     Active Substance: DIGOXIN
  27. VERQUVO [Concomitant]
     Active Substance: VERICIGUAT

REACTIONS (4)
  - Cardiac failure [Unknown]
  - Extrasystoles [Unknown]
  - Ejection fraction decreased [Unknown]
  - Headache [Unknown]
